FAERS Safety Report 23243101 (Version 1)
Quarter: 2023Q4

REPORT INFORMATION
  Report Type: Spontaneous
  Country: US (occurrence: US)
  Receive Date: 20231130
  Receipt Date: 20231130
  Transmission Date: 20240110
  Serious: No
  Sender: FDA-Public Use
  Company Number: US-STRIDES ARCOLAB LIMITED-2023SP017140

PATIENT
  Age: 70 Year
  Sex: Female

DRUGS (8)
  1. PREDNISOLONE [Suspect]
     Active Substance: PREDNISOLONE
     Indication: Choroidal effusion
     Dosage: UNK
     Route: 048
  2. PREDNISOLONE [Suspect]
     Active Substance: PREDNISOLONE
     Indication: Retinal detachment
  3. ACETAZOLAMIDE [Suspect]
     Active Substance: ACETAZOLAMIDE
     Indication: Choroidal effusion
     Dosage: UNK
     Route: 048
  4. ACETAZOLAMIDE [Suspect]
     Active Substance: ACETAZOLAMIDE
     Indication: Retinal detachment
  5. DIFLUPREDNATE [Concomitant]
     Active Substance: DIFLUPREDNATE
     Indication: Choroidal effusion
     Dosage: UNK
     Route: 061
  6. DIFLUPREDNATE [Concomitant]
     Active Substance: DIFLUPREDNATE
     Indication: Retinal detachment
  7. LATANOPROST [Concomitant]
     Active Substance: LATANOPROST
     Indication: Choroidal effusion
     Dosage: UNK
     Route: 061
  8. LATANOPROST [Concomitant]
     Active Substance: LATANOPROST
     Indication: Retinal detachment

REACTIONS (3)
  - Malaise [Unknown]
  - Drug intolerance [Unknown]
  - Off label use [Unknown]
